FAERS Safety Report 6829419-6 (Version None)
Quarter: 2010Q3

REPORT INFORMATION
  Report Type: 
  Country: None (occurrence: None)
  Receive Date: 20100709
  Receipt Date: 20070312
  Transmission Date: 20110219
  Serious: No
  Sender: FDA-Public Use
  Company Number: US-PFIZER INC-2007020033

PATIENT
  Sex: Female
  Weight: 97.52 kg

DRUGS (7)
  1. CHANTIX [Suspect]
     Indication: SMOKING CESSATION THERAPY
     Dates: start: 20070306
  2. METHOTREXATE [Concomitant]
     Indication: RHEUMATOID ARTHRITIS
  3. HYDROXYCHLOROQUINE [Concomitant]
     Indication: RHEUMATOID ARTHRITIS
  4. LEFLUNOMIDE [Concomitant]
     Route: 048
  5. ZYPREXA [Concomitant]
     Indication: SCHIZOPHRENIA
  6. BUPROPION HCL [Concomitant]
  7. VITAMINS [Concomitant]

REACTIONS (3)
  - CHILLS [None]
  - FATIGUE [None]
  - LETHARGY [None]
